FAERS Safety Report 8375549-X (Version None)
Quarter: 2012Q1

REPORT INFORMATION
  Report Type: 
  Country: None (occurrence: None)
  Receive Date: 20120323
  Receipt Date: 20110321
  Transmission Date: 20120608
  Serious: Yes (Hospitalization, Other)
  Sender: FDA-Public Use
  Company Number: 163-21880-11030771

PATIENT
  Age: 76 Year
  Sex: Male

DRUGS (8)
  1. DEXAMETHASONE [Concomitant]
  2. CALCIUM [Concomitant]
  3. FOSAMAX [Concomitant]
  4. VITAMIN D [Concomitant]
  5. REVLIMID [Suspect]
     Indication: MULTIPLE MYELOMA
     Dosage: 15 MG, 1 IN 1 D, PO ; 15 MG, DAYS 1-14 Q 21 DAYS, PO
     Route: 048
     Dates: start: 20110211, end: 20110301
  6. REVLIMID [Suspect]
     Indication: MULTIPLE MYELOMA
     Dosage: 15 MG, 1 IN 1 D, PO ; 15 MG, DAYS 1-14 Q 21 DAYS, PO
     Route: 048
     Dates: start: 20110301
  7. VELCADE [Concomitant]
  8. ASPIRIN [Concomitant]

REACTIONS (6)
  - HYPONATRAEMIA [None]
  - DYSPNOEA [None]
  - THROMBOCYTOPENIA [None]
  - LETHARGY [None]
  - ATRIAL FIBRILLATION [None]
  - TRANSIENT ISCHAEMIC ATTACK [None]
